FAERS Safety Report 24922659 (Version 1)
Quarter: 2025Q1

REPORT INFORMATION
  Report Type: Spontaneous
  Country: US (occurrence: US)
  Receive Date: 20250204
  Receipt Date: 20250204
  Transmission Date: 20250409
  Serious: No
  Sender: MERCK
  Company Number: US-009507513-2501USA001731

PATIENT
  Age: 53 Year
  Sex: Female

DRUGS (2)
  1. KEYTRUDA [Suspect]
     Active Substance: PEMBROLIZUMAB
     Indication: Conjunctival melanoma
     Dosage: 200MG, Q3W
  2. MITOMYCIN C [Concomitant]
     Active Substance: MITOMYCIN
     Indication: Conjunctival melanoma
     Route: 061

REACTIONS (1)
  - Product use in unapproved indication [Unknown]
